FAERS Safety Report 7831460-1 (Version None)
Quarter: 2011Q4

REPORT INFORMATION
  Report Type: 
  Country: None (occurrence: None)
  Receive Date: 20111021
  Receipt Date: 20111012
  Transmission Date: 20120403
  Serious: Yes (Other)
  Sender: FDA-Public Use
  Company Number: GB-ABBOTT-11P-167-0866837-00

PATIENT
  Age: 61 Year
  Sex: Male

DRUGS (2)
  1. HUMIRA [Suspect]
     Indication: PSORIATIC ARTHROPATHY
     Dates: start: 20081201
  2. HUMIRA [Suspect]
     Dates: end: 20100401

REACTIONS (10)
  - ABDOMINAL DISTENSION [None]
  - WHITE BLOOD CELL COUNT DECREASED [None]
  - C-REACTIVE PROTEIN INCREASED [None]
  - GRANULOMA [None]
  - NAUSEA [None]
  - TUBERCULOSIS [None]
  - PERITONEAL DISORDER [None]
  - ABDOMINAL PAIN [None]
  - MALIGNANT ASCITES [None]
  - DIARRHOEA [None]
